FAERS Safety Report 22289479 (Version 1)
Quarter: 2023Q2

REPORT INFORMATION
  Report Type: Spontaneous
  Country: US (occurrence: None)
  Receive Date: 20230505
  Receipt Date: 20230505
  Transmission Date: 20230722
  Serious: No
  Sender: FDA-Public Use
  Company Number: None

PATIENT
  Age: 71 Year
  Sex: Female
  Weight: 63.5 kg

DRUGS (29)
  1. CAPECITABINE [Suspect]
     Active Substance: CAPECITABINE
     Indication: Breast cancer female
     Dosage: FREQUENCY : TWICE A DAY;?
     Route: 048
  2. ALIGN [Concomitant]
     Active Substance: BIFIDOBACTERIUM LONGUM SUBSP. INFANTIS
  3. AZO [Concomitant]
     Active Substance: PHENAZOPYRIDINE HYDROCHLORIDE
  4. BIOTIN [Concomitant]
  5. CALCIUM-MAGNESIUM-ZINC [Concomitant]
  6. CHLORHEXADINE [Concomitant]
  7. CHOLESTOFF [Concomitant]
  8. CRESTOR [Concomitant]
     Active Substance: ROSUVASTATIN CALCIUM
  9. MULTI VITAMIN [Concomitant]
  10. LYSINE [Concomitant]
  11. VITAMIN C [Concomitant]
     Active Substance: ASCORBIC ACID
  12. EVEROLIMUS [Concomitant]
     Active Substance: EVEROLIMUS
  13. FUROSEMIDE [Concomitant]
     Active Substance: FUROSEMIDE
  14. GABAPENTIN [Concomitant]
  15. GARLIC [Concomitant]
     Active Substance: GARLIC
  16. NORCO [Concomitant]
     Active Substance: ACETAMINOPHEN\HYDROCODONE BITARTRATE
  17. IBRANCE [Concomitant]
     Active Substance: PALBOCICLIB
  18. LIDOCAINE [Concomitant]
  19. MACROBID [Concomitant]
     Active Substance: NITROFURANTOIN\NITROFURANTOIN MONOHYDRATE
  20. MELOXICAM [Concomitant]
  21. NERVIVE [Concomitant]
  22. OMEGA 3 [Concomitant]
     Active Substance: CAPSAICIN
  23. PAXLOVID [Concomitant]
     Active Substance: NIRMATRELVIR\RITONAVIR
  24. PEPCID [Concomitant]
     Active Substance: FAMOTIDINE
  25. POTASSIUM [Concomitant]
  26. PRILOSEC [Concomitant]
     Active Substance: OMEPRAZOLE MAGNESIUM
  27. SIMVASTATIN [Concomitant]
  28. TRIAMCINOLONE [Concomitant]
     Active Substance: TRIAMCINOLONE
  29. VITAMIN D [Concomitant]
     Active Substance: VITAMIN D NOS

REACTIONS (1)
  - Palmar-plantar erythrodysaesthesia syndrome [None]
